FAERS Safety Report 13910842 (Version 1)
Quarter: 2017Q3

REPORT INFORMATION
  Report Type: Spontaneous
  Country: RO (occurrence: RO)
  Receive Date: 20170828
  Receipt Date: 20170828
  Transmission Date: 20171127
  Serious: Yes (Hospitalization, Other)
  Sender: FDA-Public Use
  Company Number: RO-MYLANLABS-2017M1052865

PATIENT
  Age: 42 Year
  Sex: Female

DRUGS (1)
  1. BUPIVACAINE. [Suspect]
     Active Substance: BUPIVACAINE
     Indication: SPINAL ANAESTHESIA
     Dosage: 3ML OF 0.5%, HYPERBARIC
     Route: 024

REACTIONS (2)
  - Multiple sclerosis [Unknown]
  - Unmasking of previously unidentified disease [Unknown]
